FAERS Safety Report 5306806-9 (Version None)
Quarter: 2007Q2

REPORT INFORMATION
  Report Type: 
  Country: None (occurrence: None)
  Receive Date: 20070423
  Receipt Date: 20070423
  Transmission Date: 20071010
  Serious: No
  Sender: FDA-Public Use
  Company Number: None

PATIENT
  Age: 44 Year
  Sex: Female
  Weight: 64.4108 kg

DRUGS (2)
  1. MIDOL [Suspect]
     Indication: MENSTRUAL DISCOMFORT
     Dosage: NONE TAKEN
     Dates: start: 20070420, end: 20070420
  2. PAMPRIN TAB [Suspect]
     Indication: MENSTRUAL DISCOMFORT
     Dosage: NONE TAKEN
     Dates: start: 20070420, end: 20070420

REACTIONS (2)
  - MEDICATION ERROR [None]
  - PHARMACEUTICAL PRODUCT COMPLAINT [None]
